FAERS Safety Report 19775659 (Version 1)
Quarter: 2021Q3

REPORT INFORMATION
  Report Type: Spontaneous
  Country: US (occurrence: US)
  Receive Date: 20210902
  Receipt Date: 20210902
  Transmission Date: 20211014
  Serious: No
  Sender: FDA-Public Use
  Company Number: US-CIPLA LTD.-2020US07587

PATIENT

DRUGS (1)
  1. TROSPIUM CHLORIDE. [Suspect]
     Active Substance: TROSPIUM CHLORIDE
     Indication: CHANGE OF BOWEL HABIT
     Dosage: 20 MG, UNK
     Route: 048

REACTIONS (3)
  - Drug effect less than expected [Unknown]
  - Off label use [Unknown]
  - Product use in unapproved indication [Unknown]
